FAERS Safety Report 5113789-3 (Version None)
Quarter: 2006Q3

REPORT INFORMATION
  Report Type: 
  Country: None (occurrence: None)
  Receive Date: 20060920
  Receipt Date: 20060907
  Transmission Date: 20061208
  Serious: Yes (Other)
  Sender: FDA-Public Use
  Company Number: 2006074251

PATIENT
  Age: 20 Year
  Sex: Male

DRUGS (1)
  1. VFEND [Suspect]
     Dosage: 400 MG, NTRAVENOUS
     Route: 042
     Dates: start: 20060517, end: 20060605

REACTIONS (2)
  - PHOTOPHOBIA [None]
  - RETINAL HAEMORRHAGE [None]
